FAERS Safety Report 10796756 (Version 2)
Quarter: 2015Q2

REPORT INFORMATION
  Report Type: Report from Study
  Country: PR (occurrence: PR)
  Receive Date: 20150216
  Receipt Date: 20150618
  Transmission Date: 20150821
  Serious: Yes (Other)
  Sender: FDA-Public Use
  Company Number: PR-ABBVIE-14K-131-1278729-00

PATIENT
  Age: 41 Year
  Sex: Male
  Weight: 44.49 kg

DRUGS (2)
  1. HUMIRA [Suspect]
     Active Substance: ADALIMUMAB
     Indication: CROHN^S DISEASE
     Route: 058
     Dates: start: 20140731
  2. LEXAPRO [Concomitant]
     Active Substance: ESCITALOPRAM OXALATE
     Indication: DEPRESSION
     Route: 048

REACTIONS (3)
  - Stoma site pain [Recovered/Resolved]
  - Haemoglobin decreased [Recovering/Resolving]
  - Colostomy [Recovering/Resolving]

NARRATIVE: CASE EVENT DATE: 201408
